FAERS Safety Report 16790875 (Version 1)
Quarter: 2019Q3

REPORT INFORMATION
  Report Type: Spontaneous
  Country: US (occurrence: US)
  Receive Date: 20190910
  Receipt Date: 20190910
  Transmission Date: 20191005
  Serious: Yes (Hospitalization)
  Sender: FDA-Public Use
  Company Number: US-NOVOPROD-683272

PATIENT
  Age: 75 Year
  Sex: Male

DRUGS (1)
  1. NOVOLOG [Suspect]
     Active Substance: INSULIN ASPART
     Indication: TYPE 2 DIABETES MELLITUS
     Dosage: 1 UNIT PER 15 GRAMS OF CARBS
     Route: 058

REACTIONS (3)
  - Blood glucose increased [Unknown]
  - Malaise [Unknown]
  - Pneumonia [Unknown]
